FAERS Safety Report 9197770 (Version 1)
Quarter: 2013Q1

REPORT INFORMATION
  Report Type: Spontaneous
  Country: US (occurrence: US)
  Receive Date: 20130328
  Receipt Date: 20130328
  Transmission Date: 20140127
  Serious: Yes (Hospitalization)
  Sender: FDA-Public Use
  Company Number: US-UPSHER-SMITH LABORATORIES, INC.-13001004

PATIENT
  Age: 72 Year
  Sex: Female

DRUGS (3)
  1. JANTOVEN [Suspect]
     Indication: ATRIAL FIBRILLATION
     Dosage: 3 MG, QD
     Route: 048
     Dates: start: 201302, end: 20130310
  2. DILTIAZEM [Concomitant]
     Dosage: UNK
  3. LEVOTHYROXINE [Concomitant]
     Dosage: UNK

REACTIONS (6)
  - International normalised ratio increased [Recovered/Resolved]
  - Atrial fibrillation [Recovered/Resolved]
  - Pain in extremity [Recovered/Resolved]
  - Local swelling [Recovering/Resolving]
  - Contusion [Recovering/Resolving]
  - Product substitution issue [None]
